FAERS Safety Report 18523031 (Version 1)
Quarter: 2020Q4

REPORT INFORMATION
  Report Type: Spontaneous
  Country: NL (occurrence: NL)
  Receive Date: 20201119
  Receipt Date: 20201119
  Transmission Date: 20210114
  Serious: Yes (Other)
  Sender: FDA-Public Use
  Company Number: NL-MYLANLABS-2020M1095813

PATIENT
  Sex: Female
  Weight: 56 kg

DRUGS (1)
  1. CITALOPRAM MYLAN 20MG, FILMTABLETTEN [Suspect]
     Active Substance: CITALOPRAM HYDROBROMIDE
     Indication: DEPRESSED MOOD
     Dosage: 1 DOSAGE FORM, QD (1X PER DAG)
     Dates: start: 20200923, end: 20201003

REACTIONS (7)
  - Restlessness [Recovered/Resolved]
  - Paraesthesia [Recovered/Resolved]
  - Agitation [Recovered/Resolved]
  - Syncope [Recovered/Resolved]
  - Heart rate increased [Recovered/Resolved]
  - Tremor [Recovered/Resolved]
  - Therapeutic response unexpected [Unknown]
